FAERS Safety Report 23781185 (Version 1)
Quarter: 2024Q2

REPORT INFORMATION
  Report Type: Spontaneous
  Country: US (occurrence: US)
  Receive Date: 20240425
  Receipt Date: 20240425
  Transmission Date: 20240716
  Serious: No
  Sender: FDA-Public Use
  Company Number: US-AUROBINDO-AUR-APL-2024-013207

PATIENT
  Age: 67 Year
  Sex: Female
  Weight: 48.534 kg

DRUGS (1)
  1. LIDOCAINE HYDROCHLORIDE [Suspect]
     Active Substance: LIDOCAINE HYDROCHLORIDE
     Indication: Arthralgia
     Dosage: UNK UNK, ONCE A DAY (NDC NUMBER 55150-251-10)
     Route: 065

REACTIONS (1)
  - Fungal infection [Unknown]
